FAERS Safety Report 21699168 (Version 1)
Quarter: 2022Q4

REPORT INFORMATION
  Report Type: Spontaneous
  Country: IT (occurrence: IT)
  Receive Date: 20221208
  Receipt Date: 20221208
  Transmission Date: 20230112
  Serious: Yes (Other)
  Sender: FDA-Public Use
  Company Number: IT-002147023-NVSC2022IT278272

PATIENT
  Age: 68 Year
  Sex: Female

DRUGS (1)
  1. DASATINIB [Suspect]
     Active Substance: DASATINIB
     Indication: Chronic myeloid leukaemia
     Dosage: UNK (FIRST-LINE TREATMENT)
     Route: 065
     Dates: start: 20210914, end: 20220321

REACTIONS (2)
  - Cytogenetic analysis abnormal [Unknown]
  - Haematotoxicity [Unknown]
